FAERS Safety Report 6042057-0 (Version None)
Quarter: 2009Q1

REPORT INFORMATION
  Report Type: 
  Country: None (occurrence: None)
  Receive Date: 20090116
  Receipt Date: 20090115
  Transmission Date: 20090719
  Serious: Yes (Death)
  Sender: FDA-Public Use
  Company Number: US-ASTRAZENECA-2009UW01307

PATIENT
  Age: 89 Year
  Sex: Female
  Weight: 54.4 kg

DRUGS (2)
  1. CRESTOR [Suspect]
     Route: 048
  2. MANY DRUGS [Concomitant]

REACTIONS (1)
  - CEREBROVASCULAR ACCIDENT [None]
